FAERS Safety Report 6257378-6 (Version None)
Quarter: 2009Q3

REPORT INFORMATION
  Report Type: 
  Country: None (occurrence: None)
  Receive Date: 20090706
  Receipt Date: 20090619
  Transmission Date: 20100115
  Serious: Yes (Death)
  Sender: FDA-Public Use
  Company Number: KR-PFIZER INC-2009218406

PATIENT
  Sex: Male

DRUGS (6)
  1. CAMPTOSAR [Suspect]
     Indication: METASTATIC GASTRIC CANCER
     Dosage: 180 MG/2 WEEKS
     Route: 042
     Dates: start: 20090414, end: 20090428
  2. CAMPTOSAR [Suspect]
     Dosage: 180 MG/2 WEEKS
     Route: 042
     Dates: start: 20090429, end: 20090513
  3. FLUOROURACIL [Suspect]
     Indication: METASTATIC GASTRIC CANCER
     Dosage: 1000 MG/2 WEEKS
     Route: 042
     Dates: start: 20090414, end: 20090428
  4. FLUOROURACIL [Suspect]
     Dosage: 1000 MG/2 WEEKS
     Route: 042
     Dates: start: 20090429, end: 20090513
  5. CALCIUM LEVOFOLINATE [Suspect]
     Indication: METASTATIC GASTRIC CANCER
     Dosage: 200 MG/2 WEEKS
     Route: 042
     Dates: start: 20090414, end: 20090428
  6. CALCIUM LEVOFOLINATE [Suspect]
     Dosage: 200 MG/2 WEEKS
     Route: 042
     Dates: start: 20090429, end: 20090513

REACTIONS (1)
  - HYPOVOLAEMIC SHOCK [None]
